FAERS Safety Report 11890751 (Version 2)
Quarter: 2016Q1

REPORT INFORMATION
  Report Type: Spontaneous
  Country: FR (occurrence: FR)
  Receive Date: 20160105
  Receipt Date: 20160122
  Transmission Date: 20160526
  Serious: Yes (Hospitalization, Other)
  Sender: FDA-Public Use
  Company Number: FR-BRISTOL-MYERS SQUIBB COMPANY-BMS-2015-091559

PATIENT
  Age: 88 Year
  Sex: Female

DRUGS (1)
  1. COUMADINE [Suspect]
     Active Substance: WARFARIN SODIUM
     Indication: ATRIAL FIBRILLATION
     Route: 048

REACTIONS (9)
  - International normalised ratio increased [Unknown]
  - Melaena [Recovering/Resolving]
  - Rotator cuff syndrome [Unknown]
  - Fall [Unknown]
  - Transfusion [Unknown]
  - Craniocerebral injury [Unknown]
  - Renal abscess [Not Recovered/Not Resolved]
  - Anaemia [Unknown]
  - Gastric ulcer [Recovering/Resolving]

NARRATIVE: CASE EVENT DATE: 20151111
